FAERS Safety Report 8564599-6 (Version None)
Quarter: 2012Q3

REPORT INFORMATION
  Report Type: 
  Country: None (occurrence: None)
  Receive Date: 20120803
  Receipt Date: 20120727
  Transmission Date: 20120928
  Serious: Yes (Other)
  Sender: FDA-Public Use
  Company Number: NO-PFIZER INC-2012182338

PATIENT
  Age: 62 Year
  Sex: Male

DRUGS (1)
  1. TERRA-CORTRIL POLYMYXIN B [Suspect]

REACTIONS (1)
  - HYPOACUSIS [None]
